FAERS Safety Report 7963858-5 (Version None)
Quarter: 2011Q4

REPORT INFORMATION
  Report Type: 
  Country: None (occurrence: None)
  Receive Date: 20111205
  Receipt Date: 20111122
  Transmission Date: 20120403
  Serious: Yes (Hospitalization)
  Sender: FDA-Public Use
  Company Number: OMPQ-NO-1110S-1205

PATIENT
  Age: 77 Year
  Sex: Male

DRUGS (9)
  1. LACTOL S (LACTOBACILLUS ACIDOPHILUS) [Concomitant]
  2. AZULFIDINE EN-TABS [Concomitant]
  3. GASPORT (FAMOTIDINE) [Concomitant]
  4. CALFINA (ALFACALCIDOL) [Concomitant]
  5. MOBIC [Concomitant]
  6. AMINOPHENAZONE, CAFFEINE, PHENACETIN, CYCLOBARBITAL AMINOPHENAZONE (SE [Concomitant]
  7. MAGLAX (MAGNESIUM OXIDE) [Concomitant]
  8. OMNIPAQUE 70 [Suspect]
     Indication: DYSPHONIA
     Dosage: 100 ML, SINGLE DOSE, INTRAVENOUS
     Route: 042
     Dates: start: 20110801, end: 20110801
  9. PHENACETIN, PARACETAMOL (NORSHIN) (PHENACETIN, GLYCINE) [Suspect]
     Indication: HEADACHE
     Dosage: NR, ORAL
     Route: 048
     Dates: start: 20110701, end: 20110801

REACTIONS (2)
  - ERYTHEMA MULTIFORME [None]
  - LYMPHOCYTE STIMULATION TEST POSITIVE [None]
